FAERS Safety Report 6016535-4 (Version None)
Quarter: 2008Q4

REPORT INFORMATION
  Report Type: 
  Country: None (occurrence: None)
  Receive Date: 20081218
  Receipt Date: 20081203
  Transmission Date: 20090506
  Serious: Yes (Hospitalization)
  Sender: FDA-Public Use
  Company Number: 2008150551

PATIENT
  Sex: Female

DRUGS (1)
  1. FRAGMIN [Suspect]
     Indication: HYPERCOAGULATION
     Dosage: 5000 IU, AS NEEDED, SUBCUTANEOUS
     Route: 058

REACTIONS (6)
  - ANAPHYLACTIC SHOCK [None]
  - ERYTHEMA [None]
  - INJECTION SITE HYPERSENSITIVITY [None]
  - LOSS OF CONSCIOUSNESS [None]
  - POST PROCEDURAL HAEMORRHAGE [None]
  - SURGERY [None]
